FAERS Safety Report 4463037-2 (Version None)
Quarter: 2004Q3

REPORT INFORMATION
  Report Type: 
  Country: None (occurrence: None)
  Receive Date: 20040928
  Receipt Date: 20040913
  Transmission Date: 20050211
  Serious: Yes (Hospitalization, Other)
  Sender: FDA-Public Use
  Company Number: 2004-DE-04829DE

PATIENT
  Age: 30 Year

DRUGS (5)
  1. MOBIC [Suspect]
     Dosage: 75 MG (7.5 MG, 1X10 TABLETS) PO ONCE
     Route: 048
  2. VIVINOX (TA) [Suspect]
     Dosage: 100 MG (NR, 1X 4 TABLETS) PO ONCE
     Route: 048
  3. SINUPRET (SINUPRET) (TA) [Suspect]
     Dosage: 1X20 TABLETS (NR, 1X20 TABLETS) PO ONCE
     Route: 048
  4. PENICILLIN [Suspect]
     Dosage: PO ONCE
     Route: 048
  5. NORFLOXACIN [Suspect]
     Dosage: PO ONCE
     Route: 048

REACTIONS (4)
  - DRUG ABUSER [None]
  - MULTIPLE DRUG OVERDOSE INTENTIONAL [None]
  - SOMNOLENCE [None]
  - SUICIDE ATTEMPT [None]
